FAERS Safety Report 13639163 (Version 1)
Quarter: 2017Q2

REPORT INFORMATION
  Report Type: Spontaneous
  Country: US (occurrence: US)
  Receive Date: 20170609
  Receipt Date: 20170609
  Transmission Date: 20170830
  Serious: No
  Sender: FDA-Public Use
  Company Number: US-ROCHE-1174727

PATIENT
  Age: 72 Year
  Sex: Female

DRUGS (2)
  1. KLONOPIN [Suspect]
     Active Substance: CLONAZEPAM
     Indication: BIPOLAR DISORDER
     Route: 048
  2. KLONOPIN [Suspect]
     Active Substance: CLONAZEPAM
     Route: 048

REACTIONS (23)
  - Depression [Unknown]
  - Panic attack [Unknown]
  - Dyspnoea [Unknown]
  - Mood altered [Unknown]
  - Negative thoughts [Unknown]
  - Suicidal ideation [Unknown]
  - Muscular weakness [Unknown]
  - Anxiety [Unknown]
  - Confusional state [Unknown]
  - Suicide attempt [Unknown]
  - Insomnia [Unknown]
  - Somnolence [Unknown]
  - Gait disturbance [Unknown]
  - Disturbance in attention [Unknown]
  - Coordination abnormal [Unknown]
  - Aggression [Unknown]
  - Mania [Unknown]
  - Memory impairment [Unknown]
  - Irritability [Unknown]
  - Anger [Unknown]
  - Dizziness [Unknown]
  - Fatigue [Unknown]
  - Emotional disorder [Unknown]
